FAERS Safety Report 16420584 (Version 2)
Quarter: 2019Q2

REPORT INFORMATION
  Report Type: Report from Study
  Country: IT (occurrence: IT)
  Receive Date: 20190612
  Receipt Date: 20190613
  Transmission Date: 20190711
  Serious: Yes (Other)
  Sender: FDA-Public Use
  Company Number: IT-JNJFOC-20190609004

PATIENT
  Age: 46 Year
  Sex: Female
  Weight: 54 kg

DRUGS (1)
  1. USTEKINUMAB [Suspect]
     Active Substance: USTEKINUMAB
     Indication: CROHN^S DISEASE
     Route: 058

REACTIONS (1)
  - Cervix neoplasm [Not Recovered/Not Resolved]

NARRATIVE: CASE EVENT DATE: 20190515
